FAERS Safety Report 9774068 (Version 3)
Quarter: 2014Q1

REPORT INFORMATION
  Report Type: Spontaneous
  Country: US (occurrence: US)
  Receive Date: 20131220
  Receipt Date: 20140210
  Transmission Date: 20141002
  Serious: No
  Sender: FDA-Public Use
  Company Number: US-BIOGENIDEC-2013BI120877

PATIENT
  Sex: Female

DRUGS (1)
  1. TYSABRI [Suspect]
     Indication: MULTIPLE SCLEROSIS
     Route: 042
     Dates: start: 20100319, end: 20100806

REACTIONS (5)
  - Abasia [Not Recovered/Not Resolved]
  - Irritability [Unknown]
  - Muscle atrophy [Not Recovered/Not Resolved]
  - Weight increased [Unknown]
  - Loss of control of legs [Not Recovered/Not Resolved]
